FAERS Safety Report 17408060 (Version 5)
Quarter: 2020Q3

REPORT INFORMATION
  Report Type: Other
  Country: GB (occurrence: GB)
  Receive Date: 20200212
  Receipt Date: 20200927
  Transmission Date: 20201102
  Serious: Yes (Other)
  Sender: FDA-Public Use
  Company Number: GB-ROCHE-2539100

PATIENT
  Sex: Male

DRUGS (4)
  1. OMEPRAZOLE. [Concomitant]
     Active Substance: OMEPRAZOLE
  2. ASPIRIN. [Concomitant]
     Active Substance: ASPIRIN
  3. PREDNISOLONE. [Concomitant]
     Active Substance: PREDNISOLONE
  4. ROACTEMRA [Suspect]
     Active Substance: TOCILIZUMAB
     Indication: RHEUMATOID ARTHRITIS
     Route: 058
     Dates: start: 20150902

REACTIONS (4)
  - Muscle spasms [Unknown]
  - Hypoaesthesia [Unknown]
  - Condition aggravated [Unknown]
  - Rheumatoid arthritis [Unknown]
